FAERS Safety Report 21885543 (Version 1)
Quarter: 2023Q1

REPORT INFORMATION
  Report Type: Spontaneous
  Country: AT (occurrence: AT)
  Receive Date: 20230119
  Receipt Date: 20230119
  Transmission Date: 20230417
  Serious: Yes (Hospitalization, Other)
  Sender: FDA-Public Use
  Company Number: AT-009507513-2212AUT001462

PATIENT
  Age: 45 Year
  Sex: Male
  Weight: 97 kg

DRUGS (3)
  1. IBUPROFEN [Suspect]
     Active Substance: IBUPROFEN
     Indication: Pain
     Dosage: 1200 MILLIGRAM,QD (600 MG,TWICE A DAY (BID),1-0-1)
     Route: 048
     Dates: start: 202204, end: 202211
  2. PEMBROLIZUMAB [Suspect]
     Active Substance: PEMBROLIZUMAB
     Indication: Adenocarcinoma metastatic
     Dosage: 200 MILLIGRAM (200 MG)
     Route: 042
     Dates: start: 20221102
  3. PEMETREXED [Suspect]
     Active Substance: PEMETREXED
     Indication: Product used for unknown indication
     Dosage: TWICE A DAY (BID)
     Route: 042
     Dates: start: 20221102

REACTIONS (1)
  - Colitis ischaemic [Recovered/Resolved]

NARRATIVE: CASE EVENT DATE: 20221110
